FAERS Safety Report 9293106 (Version 1)
Quarter: 2013Q2

REPORT INFORMATION
  Report Type: Spontaneous
  Country: US (occurrence: None)
  Receive Date: 20130514
  Receipt Date: 20130514
  Transmission Date: 20140414
  Serious: Yes (Other)
  Sender: FDA-Public Use
  Company Number: 2013-001477

PATIENT
  Sex: Male

DRUGS (1)
  1. ASACOL [Suspect]
     Indication: COLITIS ULCERATIVE
     Route: 048
     Dates: start: 1998

REACTIONS (6)
  - Deep vein thrombosis [None]
  - Drug ineffective [None]
  - Haematochezia [None]
  - Frequent bowel movements [None]
  - Fatigue [None]
  - Chills [None]
